FAERS Safety Report 10757859 (Version 1)
Quarter: 2015Q1

REPORT INFORMATION
  Report Type: Spontaneous
  Country: US (occurrence: None)
  Receive Date: 20150202
  Receipt Date: 20150202
  Transmission Date: 20150721
  Serious: No
  Sender: FDA-Public Use
  Company Number: None

PATIENT
  Age: 57 Year
  Sex: Female
  Weight: 108.86 kg

DRUGS (4)
  1. OCUVITE [Suspect]
     Active Substance: VITAMINS
     Indication: VITAMIN SUPPLEMENTATION
     Dates: start: 20150126, end: 20150130
  2. OCUVITE [Suspect]
     Active Substance: VITAMINS
     Indication: MINERAL SUPPLEMENTATION
     Dates: start: 20150126, end: 20150130
  3. OCUVITE [Suspect]
     Active Substance: VITAMINS
     Indication: EYE DISORDER
     Dates: start: 20150126, end: 20150130
  4. IBUPROPHENUM [Concomitant]
     Active Substance: IBUPROFEN

REACTIONS (1)
  - Tremor [None]

NARRATIVE: CASE EVENT DATE: 20150126
